FAERS Safety Report 8119029-5 (Version None)
Quarter: 2012Q1

REPORT INFORMATION
  Report Type: 
  Country: None (occurrence: None)
  Receive Date: 20120207
  Receipt Date: 20120130
  Transmission Date: 20120608
  Serious: Yes (Hospitalization, Other)
  Sender: FDA-Public Use
  Company Number: FR-ROCHE-1030841

PATIENT
  Age: 22 Year
  Sex: Female

DRUGS (6)
  1. XOLAIR [Suspect]
     Indication: ASTHMA
     Route: 058
     Dates: start: 20100313
  2. XOLAIR [Suspect]
     Route: 058
  3. FLUTICASONE PROPIONATE/SALMETEROL [Concomitant]
  4. SINGULAIR [Concomitant]
  5. NASACORT [Concomitant]
  6. XYZAL [Concomitant]

REACTIONS (1)
  - PANCREATITIS ACUTE [None]
